FAERS Safety Report 5411116-5 (Version None)
Quarter: 2007Q3

REPORT INFORMATION
  Report Type: 
  Country: None (occurrence: None)
  Receive Date: 20070810
  Receipt Date: 20070730
  Transmission Date: 20080115
  Serious: Yes (Hospitalization)
  Sender: FDA-Public Use
  Company Number: MY-ELI_LILLY_AND_COMPANY-MY200706006457

PATIENT
  Age: 52 Year
  Sex: Male

DRUGS (2)
  1. ZYPREXA [Suspect]
     Indication: PSYCHOTIC DISORDER
     Dosage: 5 MG, DAILY (1/D)
     Route: 048
     Dates: start: 20070607, end: 20070621
  2. EPILIM [Concomitant]
     Indication: EPILEPSY
     Dosage: UNK, UNKNOWN
     Route: 048

REACTIONS (1)
  - BRONCHOPNEUMONIA [None]
